FAERS Safety Report 6367500-9 (Version None)
Quarter: 2009Q3

REPORT INFORMATION
  Report Type: 
  Country: None (occurrence: None)
  Receive Date: 20090915
  Receipt Date: 20090831
  Transmission Date: 20100115
  Serious: Yes (Death, Hospitalization)
  Sender: FDA-Public Use
  Company Number: US-JNJFOC-20090903299

PATIENT
  Age: 72 Year
  Sex: Male
  Weight: 59.8748 kg

DRUGS (1)
  1. DACOGEN [Suspect]
     Indication: ACUTE MYELOID LEUKAEMIA
     Dosage: INTRAVENOUS
     Route: 042
     Dates: start: 20090530

REACTIONS (3)
  - MULTI-ORGAN FAILURE [None]
  - PULMONARY OEDEMA [None]
  - RESPIRATORY FAILURE [None]
